FAERS Safety Report 9013318 (Version 1)
Quarter: 2013Q1

REPORT INFORMATION
  Report Type: Spontaneous
  Country: US (occurrence: None)
  Receive Date: 20130107
  Receipt Date: 20130107
  Transmission Date: 20140127
  Serious: Yes (Other)
  Sender: FDA-Public Use
  Company Number: None

PATIENT
  Age: 44 Year
  Sex: Female
  Weight: 104.33 kg

DRUGS (1)
  1. METOPROLOL TARTRATE [Suspect]
     Indication: ATRIAL FIBRILLATION
     Dates: start: 20121016, end: 20121020

REACTIONS (8)
  - Dizziness [None]
  - Palpitations [None]
  - Fatigue [None]
  - Gait disturbance [None]
  - Heart rate irregular [None]
  - Hypertension [None]
  - Balance disorder [None]
  - Product substitution issue [None]
